FAERS Safety Report 7776097-8 (Version None)
Quarter: 2011Q3

REPORT INFORMATION
  Report Type: 
  Country: None (occurrence: None)
  Receive Date: 20110925
  Receipt Date: 20110902
  Transmission Date: 20111222
  Serious: Yes (Other)
  Sender: FDA-Public Use
  Company Number: PHHY2011AR78374

PATIENT
  Sex: Female

DRUGS (1)
  1. ZOLEDRONOC ACID [Suspect]
     Indication: OSTEOPOROSIS
     Dosage: 1 AMPOULLE ANNUALLY
     Route: 042

REACTIONS (3)
  - ATRIAL FIBRILLATION [None]
  - ORAL HERPES [None]
  - ASTHENIA [None]
